FAERS Safety Report 7164333-0 (Version None)
Quarter: 2010Q4

REPORT INFORMATION
  Report Type: 
  Country: None (occurrence: None)
  Receive Date: 20101215
  Receipt Date: 20101210
  Transmission Date: 20110411
  Serious: Yes (Life-Threatening, Other)
  Sender: FDA-Public Use
  Company Number: CN-BRISTOL-MYERS SQUIBB COMPANY-15193832

PATIENT
  Age: 72 Year
  Sex: Male
  Weight: 72 kg

DRUGS (3)
  1. CETUXIMAB [Suspect]
     Indication: GASTROOESOPHAGEAL CANCER
     Dosage: STRENGTH 5 MG/ML.RECENT INF 02JUL2010 TOTAL NO OF DOSE IS 10
     Route: 042
     Dates: start: 20100430
  2. CISPLATIN [Suspect]
     Indication: GASTROOESOPHAGEAL CANCER
     Dosage: ON DAY OF 1 CYCLE;RECENT INF 18JUN2010
     Route: 042
     Dates: start: 20100430
  3. XELODA [Suspect]
     Indication: GASTROOESOPHAGEAL CANCER
     Dosage: ON DAY 1- 15,FORMULATION TABS;TEMP DISCONTD- 26JUN2010; 57DAYS RECENT DOSE ON 25JUN10
     Route: 048
     Dates: start: 20100430

REACTIONS (1)
  - BLOOD URINE PRESENT [None]
